FAERS Safety Report 5121436-X (Version None)
Quarter: 2006Q4

REPORT INFORMATION
  Report Type: 
  Country: None (occurrence: None)
  Receive Date: 20061002
  Receipt Date: 20060918
  Transmission Date: 20070319
  Serious: Yes (Hospitalization)
  Sender: FDA-Public Use
  Company Number: US200606000767

PATIENT
  Sex: Male
  Weight: 99.8 kg

DRUGS (1)
  1. ZYPREXA [Suspect]
     Dates: end: 20040101

REACTIONS (6)
  - BLOOD CHOLESTEROL INCREASED [None]
  - BLOOD TRIGLYCERIDES INCREASED [None]
  - CARDIAC DISORDER [None]
  - DIABETES MELLITUS [None]
  - HYPERTENSION [None]
  - MYOCARDIAL ISCHAEMIA [None]
